FAERS Safety Report 7617176-5 (Version None)
Quarter: 2011Q3

REPORT INFORMATION
  Report Type: 
  Country: None (occurrence: None)
  Receive Date: 20110718
  Receipt Date: 20110704
  Transmission Date: 20111222
  Serious: Yes (Hospitalization, Other)
  Sender: FDA-Public Use
  Company Number: US-RANBAXY-2010RR-40691

PATIENT

DRUGS (3)
  1. CIPROFLOXACIN [Suspect]
     Indication: PRODUCT USED FOR UNKNOWN INDICATION
     Route: 065
  2. LEVAQUIN [Suspect]
     Dosage: 750 MG, QD
     Route: 065
     Dates: start: 20050113
  3. LEVAQUIN [Suspect]
     Indication: PSEUDOMONAS INFECTION
     Dosage: UNK
     Route: 048
     Dates: start: 20041216, end: 20050201

REACTIONS (2)
  - TENDON RUPTURE [None]
  - LIGAMENT RUPTURE [None]
